FAERS Safety Report 4702901-3 (Version None)
Quarter: 2005Q2

REPORT INFORMATION
  Report Type: 
  Country: None (occurrence: None)
  Receive Date: 20050629
  Receipt Date: 20050622
  Transmission Date: 20051028
  Serious: Yes (Hospitalization)
  Sender: FDA-Public Use
  Company Number: US-JNJFOC-20050606116

PATIENT
  Age: 24 Year
  Sex: Male

DRUGS (7)
  1. FLEXERIL [Suspect]
     Indication: DRUG USE FOR UNKNOWN INDICATION
  2. ZANAFLEX [Suspect]
     Indication: DRUG USE FOR UNKNOWN INDICATION
  3. KLONOPIN [Suspect]
     Indication: DRUG USE FOR UNKNOWN INDICATION
  4. NO-DOZ [Suspect]
  5. NO-DOZ [Suspect]
     Indication: DRUG USE FOR UNKNOWN INDICATION
  6. LEXAPRO [Concomitant]
  7. DEPAKOTE [Concomitant]

REACTIONS (2)
  - INTENTIONAL MISUSE [None]
  - LOSS OF CONSCIOUSNESS [None]
